FAERS Safety Report 4458546-6 (Version None)
Quarter: 2004Q3

REPORT INFORMATION
  Report Type: 
  Country: None (occurrence: None)
  Receive Date: 20040917
  Receipt Date: 20040115
  Transmission Date: 20050211
  Serious: Yes (Hospitalization, Disabling, Other)
  Sender: FDA-Public Use
  Company Number: US-JNJFOC-20031103317

PATIENT
  Age: 35 Year
  Sex: Male

DRUGS (6)
  1. TOPAMAX [Suspect]
     Indication: MIGRAINE PROPHYLAXIS
     Dosage: 15 MG, 1 IN 1 DAY, ORAL
     Route: 048
  2. COUMADIN [Concomitant]
  3. LISINOPRIL [Concomitant]
  4. METOPROLOL TARTRATE [Concomitant]
  5. ULTRAM [Concomitant]
  6. POTASSIUM (POTASSIUM) [Concomitant]

REACTIONS (3)
  - GLAUCOMA [None]
  - HEADACHE [None]
  - VISION BLURRED [None]
